FAERS Safety Report 6571252-7 (Version None)
Quarter: 2010Q1

REPORT INFORMATION
  Report Type: 
  Country: None (occurrence: None)
  Receive Date: 20100129
  Receipt Date: 20100114
  Transmission Date: 20100710
  Serious: Yes (Disabling)
  Sender: FDA-Public Use
  Company Number: 2010000217

PATIENT
  Age: 60 Year
  Sex: Female

DRUGS (3)
  1. TARCEVA [Suspect]
     Indication: NON-SMALL CELL LUNG CANCER
     Dosage: (150 MG,QD),ORAL
     Route: 048
     Dates: start: 20090423
  2. LOPERAMIDE (LOPERAMIDE) [Concomitant]
  3. HYDROCORTONE [Concomitant]

REACTIONS (28)
  - ABDOMINAL PAIN [None]
  - ASTHENIA [None]
  - BLOOD BILIRUBIN INCREASED [None]
  - BLOOD BILIRUBIN UNCONJUGATED INCREASED [None]
  - BLOOD URINE PRESENT [None]
  - CONSTIPATION [None]
  - DEAFNESS NEUROSENSORY [None]
  - DECREASED APPETITE [None]
  - DIARRHOEA [None]
  - DIZZINESS [None]
  - DRY EYE [None]
  - DRY MOUTH [None]
  - EYE PAIN [None]
  - FATIGUE [None]
  - FOREIGN BODY SENSATION IN EYES [None]
  - GAIT DISTURBANCE [None]
  - GINGIVAL ULCERATION [None]
  - GINGIVITIS [None]
  - HEADACHE [None]
  - MUSCULAR WEAKNESS [None]
  - MUSCULOSKELETAL DISORDER [None]
  - NAUSEA [None]
  - RASH [None]
  - RED BLOOD CELL COUNT DECREASED [None]
  - SKIN EXFOLIATION [None]
  - STOMATITIS [None]
  - TOOTHACHE [None]
  - URINARY INCONTINENCE [None]
